FAERS Safety Report 13284840 (Version 1)
Quarter: 2017Q1

REPORT INFORMATION
  Report Type: Spontaneous
  Country: US (occurrence: US)
  Receive Date: 20170301
  Receipt Date: 20170301
  Transmission Date: 20170428
  Serious: No
  Sender: FDA-Public Use
  Company Number: None

PATIENT
  Age: 57 Year
  Sex: Female
  Weight: 66.28 kg

DRUGS (1)
  1. PROPOFOL 1% 10MG/ML FRESENIUS [Suspect]
     Active Substance: PROPOFOL
     Indication: COLONOSCOPY
     Dosage: 600 MG TOTAL IV
     Route: 042
     Dates: start: 20170210

REACTIONS (2)
  - Dysphonia [None]
  - Aphonia [None]

NARRATIVE: CASE EVENT DATE: 20170210
